FAERS Safety Report 5352869-4 (Version None)
Quarter: 2007Q2

REPORT INFORMATION
  Report Type: 
  Country: None (occurrence: None)
  Receive Date: 20070518
  Receipt Date: 20070404
  Transmission Date: 20071010
  Serious: No
  Sender: FDA-Public Use
  Company Number: TPA2007A00745

PATIENT
  Age: 63 Year
  Sex: Female
  Weight: 52.1637 kg

DRUGS (7)
  1. ROZEREM [Suspect]
     Indication: INSOMNIA
     Dosage: 8 MG, QHS, PER ORAL
     Route: 048
     Dates: start: 20070402
  2. THYROID TAB [Concomitant]
  3. PROGESTERONE [Concomitant]
  4. ESTRACE [Concomitant]
  5. TESTOSTERONE [Concomitant]
  6. UNK NATURAL SLEEP AID(ALL OTHER THERAPEUTIC PRODUCTS) [Concomitant]
  7. TIMED-RELEASE MELATONIN(MELATONIN) [Concomitant]

REACTIONS (4)
  - DIARRHOEA [None]
  - DRUG INEFFECTIVE [None]
  - INSOMNIA [None]
  - POOR QUALITY SLEEP [None]
